FAERS Safety Report 9781335 (Version 1)
Quarter: 2013Q4

REPORT INFORMATION
  Report Type: Spontaneous
  Country: TR (occurrence: TR)
  Receive Date: 20131224
  Receipt Date: 20131224
  Transmission Date: 20140711
  Serious: Yes (Other)
  Sender: FDA-Public Use
  Company Number: TR-ASTRAZENECA-2013SE92760

PATIENT
  Age: 63 Year
  Sex: Male

DRUGS (5)
  1. BELOC ZOK [Suspect]
     Dosage: 50 DOSE UNIT NOT PROVIDED
     Route: 048
  2. CORASPIN [Suspect]
     Route: 065
  3. CARDURA XL [Suspect]
     Route: 065
  4. SUTENT (SUNITINIB MALATE) [Suspect]
     Indication: RENAL CANCER METASTATIC
     Route: 048
     Dates: start: 2012
  5. LANSOR [Concomitant]

REACTIONS (4)
  - Haemorrhage subcutaneous [Not Recovered/Not Resolved]
  - Purpura [Not Recovered/Not Resolved]
  - Dizziness [Not Recovered/Not Resolved]
  - Nausea [Not Recovered/Not Resolved]
